FAERS Safety Report 6341479-8 (Version None)
Quarter: 2009Q3

REPORT INFORMATION
  Report Type: 
  Country: None (occurrence: None)
  Receive Date: 20090904
  Receipt Date: 20090824
  Transmission Date: 20100115
  Serious: Yes (Death, Hospitalization, Other)
  Sender: FDA-Public Use
  Company Number: US-PFIZER INC-2009246085

PATIENT
  Sex: Female

DRUGS (11)
  1. DOXORUBICIN HCL [Suspect]
     Indication: TRANSITIONAL CELL CARCINOMA
     Dosage: 62 MG, 1/3 WEEK
     Route: 042
     Dates: start: 20090603, end: 20090708
  2. BRIVANIB ALANINATE [Suspect]
     Indication: TRANSITIONAL CELL CARCINOMA
     Dosage: 600 MG, 1 DAY
     Route: 048
     Dates: start: 20090617, end: 20090708
  3. LIPITOR [Concomitant]
     Dosage: UNK
     Dates: start: 20040101
  4. VALSARTAN [Concomitant]
     Dosage: UNK
     Dates: start: 20040101
  5. COREG [Concomitant]
     Dosage: UNK
     Dates: start: 20040101
  6. ACETYLSALICYLIC ACID [Concomitant]
  7. LOTREL [Concomitant]
  8. MS CONTIN [Concomitant]
  9. MORPHINE SULFATE [Concomitant]
  10. ROBITUSSIN AC ^METRO DRUG^ [Concomitant]
  11. EX-LAX ^EX-LAX INC^ [Concomitant]

REACTIONS (4)
  - CARDIOMYOPATHY [None]
  - DISEASE PROGRESSION [None]
  - MYOCARDIAL INFARCTION [None]
  - TRANSITIONAL CELL CARCINOMA [None]
